FAERS Safety Report 7006264-2 (Version None)
Quarter: 2010Q3

REPORT INFORMATION
  Report Type: 
  Country: None (occurrence: None)
  Receive Date: 20100921
  Receipt Date: 20100909
  Transmission Date: 20110219
  Serious: Yes (Other)
  Sender: FDA-Public Use
  Company Number: US-PFIZER INC-2010114192

PATIENT
  Sex: Female
  Weight: 98.413 kg

DRUGS (3)
  1. LYRICA [Suspect]
     Indication: FIBROMYALGIA
     Dosage: 50 MG, 3X/DAY
     Route: 048
     Dates: start: 20100301
  2. NORCO [Concomitant]
     Dosage: UNK
  3. ZANAFLEX [Concomitant]
     Dosage: UNK

REACTIONS (4)
  - DRY MOUTH [None]
  - HYPOAESTHESIA [None]
  - OEDEMA PERIPHERAL [None]
  - WEIGHT INCREASED [None]
